FAERS Safety Report 12507413 (Version 1)
Quarter: 2016Q2

REPORT INFORMATION
  Report Type: Spontaneous
  Country: US (occurrence: None)
  Receive Date: 20160628
  Receipt Date: 20160628
  Transmission Date: 20160815
  Serious: Yes (Hospitalization)
  Sender: FDA-Public Use
  Company Number: None

PATIENT
  Age: 58 Year
  Sex: Female
  Weight: 72.58 kg

DRUGS (19)
  1. VALACYCLOVIR [Concomitant]
     Active Substance: VALACYCLOVIR HYDROCHLORIDE
  2. VENTOLIN [Concomitant]
     Active Substance: ALBUTEROL SULFATE
  3. RIZATRIPTAN BENZOATE TABLET 10 M, 10 MG GLENMARK PHARMACEUTICALS INC., USA [Suspect]
     Active Substance: RIZATRIPTAN BENZOATE
     Indication: MIGRAINE
     Dosage: 1 TABLET(S) AS NEEDED TAKEN BY MOUTH
     Route: 048
     Dates: start: 20160609, end: 20160610
  4. CITALOPRAM [Concomitant]
     Active Substance: CITALOPRAM HYDROBROMIDE
  5. BUPROPION. [Concomitant]
     Active Substance: BUPROPION
  6. LOPERAMIDE [Concomitant]
     Active Substance: LOPERAMIDE
  7. MONTELUKAST [Concomitant]
     Active Substance: MONTELUKAST SODIUM
  8. LEVOTHYROXINE. [Concomitant]
     Active Substance: LEVOTHYROXINE
  9. LORATADINE. [Concomitant]
     Active Substance: LORATADINE
  10. VAGIFEM [Concomitant]
     Active Substance: ESTRADIOL
  11. TRAMADOL. [Concomitant]
     Active Substance: TRAMADOL
  12. FLAXSEED [Concomitant]
     Active Substance: FLAX SEED
  13. PROPRANOLOL [Concomitant]
     Active Substance: PROPRANOLOL\PROPRANOLOL HYDROCHLORIDE
  14. METFORMIN [Concomitant]
     Active Substance: METFORMIN HYDROCHLORIDE
  15. RIZATRIPTAN. [Concomitant]
     Active Substance: RIZATRIPTAN
  16. NARATRIPTAN HCL [Concomitant]
     Active Substance: NARATRIPTAN HYDROCHLORIDE
  17. GLUCOSAMINE [Concomitant]
     Active Substance: GLUCOSAMINE
  18. CHONDROITIN [Concomitant]
     Active Substance: CHONDROITIN
  19. MSM [Concomitant]
     Active Substance: DIMETHYL SULFONE

REACTIONS (8)
  - Vomiting [None]
  - Hypertension [None]
  - Incoherent [None]
  - Dehydration [None]
  - Economic problem [None]
  - Product substitution issue [None]
  - Extra dose administered [None]
  - Headache [None]

NARRATIVE: CASE EVENT DATE: 20160609
